FAERS Safety Report 25999712 (Version 1)
Quarter: 2025Q4

REPORT INFORMATION
  Report Type: Spontaneous
  Country: US (occurrence: US)
  Receive Date: 20251105
  Receipt Date: 20251105
  Transmission Date: 20260118
  Serious: No
  Sender: ABBVIE
  Company Number: US-ABBVIE-6526827

PATIENT

DRUGS (1)
  1. RINVOQ [Suspect]
     Active Substance: UPADACITINIB
     Indication: Product used for unknown indication
     Route: 048
     Dates: start: 202509, end: 202510

REACTIONS (3)
  - Swelling [Unknown]
  - Eye swelling [Unknown]
  - Rash pruritic [Unknown]

NARRATIVE: CASE EVENT DATE: 20250101
